FAERS Safety Report 5400454-8 (Version None)
Quarter: 2007Q3

REPORT INFORMATION
  Report Type: 
  Country: None (occurrence: None)
  Receive Date: 20070725
  Receipt Date: 20070713
  Transmission Date: 20080115
  Serious: Yes (Other)
  Sender: FDA-Public Use
  Company Number: 220001M07PRT

PATIENT
  Age: 9 Year
  Sex: Male
  Weight: 28 kg

DRUGS (1)
  1. SAIZEN [Suspect]
     Indication: GROWTH HORMONE DEFICIENCY
     Dosage: 0.84 MG, 7 IN 1 WEEKS, SUBCUTANEOUS
     Route: 058
     Dates: start: 20070326, end: 20070528

REACTIONS (1)
  - HAEMANGIOMA OF LIVER [None]
